FAERS Safety Report 10435964 (Version 1)
Quarter: 2014Q3

REPORT INFORMATION
  Report Type: Spontaneous
  Country: US (occurrence: US)
  Receive Date: 20140908
  Receipt Date: 20140908
  Transmission Date: 20150326
  Serious: No
  Sender: FDA-Public Use
  Company Number: US-GLAXOSMITHKLINE-A1079014A

PATIENT
  Age: 87 Year
  Sex: Female

DRUGS (13)
  1. TRIAMTERENE. [Concomitant]
     Active Substance: TRIAMTERENE
  2. CENTRUM SILVER [Concomitant]
     Active Substance: VITAMINS
  3. DILTIAZEM [Concomitant]
     Active Substance: DILTIAZEM
  4. ATENOLOL. [Concomitant]
     Active Substance: ATENOLOL
  5. MAGNESIUM [Concomitant]
     Active Substance: MAGNESIUM
  6. CRANBERRY. [Concomitant]
     Active Substance: CRANBERRY
  7. BREO ELLIPTA [Suspect]
     Active Substance: FLUTICASONE FUROATE\VILANTEROL TRIFENATATE
     Indication: ASTHMA
     Dosage: 1PUFF PER DAY
     Route: 055
     Dates: start: 20140617
  8. ATORVASTATIN [Concomitant]
     Active Substance: ATORVASTATIN
  9. LEVOTHYROXINE [Concomitant]
     Active Substance: LEVOTHYROXINE
  10. UNKNOWN MEDICATION [Concomitant]
     Active Substance: UNSPECIFIED INGREDIENT
  11. METFORMIN [Concomitant]
     Active Substance: METFORMIN HYDROCHLORIDE
  12. VITAMIN D3 [Concomitant]
     Active Substance: CHOLECALCIFEROL
  13. PROBIOTIC [Concomitant]
     Active Substance: PROBIOTICS NOS

REACTIONS (1)
  - Local swelling [Not Recovered/Not Resolved]

NARRATIVE: CASE EVENT DATE: 20140624
